FAERS Safety Report 20092995 (Version 1)
Quarter: 2021Q4

REPORT INFORMATION
  Report Type: Report from Study
  Country: EG (occurrence: EG)
  Receive Date: 20211120
  Receipt Date: 20211120
  Transmission Date: 20220303
  Serious: Yes (Hospitalization, Other)
  Sender: FDA-Public Use
  Company Number: EG-NOVARTISPH-NVSC2021EG261207

PATIENT
  Age: 58 Year
  Sex: Female

DRUGS (5)
  1. ENTRESTO [Suspect]
     Active Substance: SACUBITRIL\VALSARTAN
     Indication: Cardiac failure
     Dosage: 0.5 MG, BID (100 MG)
     Route: 048
     Dates: start: 20190615
  2. ENTRESTO [Suspect]
     Active Substance: SACUBITRIL\VALSARTAN
     Indication: Arteriosclerosis
  3. RIVAROSPIRE [Concomitant]
     Indication: Anticoagulant therapy
     Dosage: 15 MG, QD
     Route: 048
     Dates: end: 202103
  4. RIVAROSPIRE [Concomitant]
     Dosage: 10 MG, QD
     Route: 048
     Dates: start: 202103
  5. PANTOPRAZOLE SODIUM [Concomitant]
     Active Substance: PANTOPRAZOLE SODIUM
     Indication: Gastrointestinal disorder
     Dosage: 20 MG, BID
     Route: 048
     Dates: start: 20190615

REACTIONS (6)
  - Flank pain [Recovering/Resolving]
  - Abdominal abscess [Recovering/Resolving]
  - Angina pectoris [Recovered/Resolved]
  - Dyspnoea [Recovered/Resolved]
  - Hypertension [Recovering/Resolving]
  - Wrong technique in product usage process [Not Recovered/Not Resolved]

NARRATIVE: CASE EVENT DATE: 20190615
